FAERS Safety Report 22228163 (Version 1)
Quarter: 2023Q2

REPORT INFORMATION
  Report Type: Spontaneous
  Country: US (occurrence: US)
  Receive Date: 20230419
  Receipt Date: 20230419
  Transmission Date: 20230721
  Serious: No
  Sender: FDA-Public Use
  Company Number: US-PFIZER INC-PV202300024823

PATIENT
  Age: 75 Year
  Sex: Female
  Weight: 81.19 kg

DRUGS (5)
  1. IBRANCE [Suspect]
     Active Substance: PALBOCICLIB
     Indication: Breast cancer metastatic
     Dosage: UNK
     Dates: start: 202203
  2. IBRANCE [Suspect]
     Active Substance: PALBOCICLIB
     Dosage: 100 MG, CYCLIC (100MG ONCE A DAY BY MOUTH FOR 3 WEEKS THEN A WEEK OFF)
     Route: 048
     Dates: start: 20220523
  3. IBRANCE [Suspect]
     Active Substance: PALBOCICLIB
     Dosage: 100 MG
     Dates: start: 20220705
  4. LETROZOLE [Concomitant]
     Active Substance: LETROZOLE
     Indication: Oestrogen therapy
     Dosage: 2.5 MG, DAILY
     Route: 048
     Dates: start: 202203
  5. XGEVA [Concomitant]
     Active Substance: DENOSUMAB
     Indication: Bone disorder
     Dosage: TAKES XGEVA ON HER WEEK OFF FROM IBRANCE. DOSE UNKNOWN, INJECTION ONCE A MONTH
     Dates: start: 202203

REACTIONS (3)
  - Full blood count decreased [Recovered/Resolved]
  - Appetite disorder [Recovering/Resolving]
  - Back pain [Unknown]
